FAERS Safety Report 4839955-X (Version None)
Quarter: 2005Q4

REPORT INFORMATION
  Report Type: 
  Country: None (occurrence: None)
  Receive Date: 20051129
  Receipt Date: 20051118
  Transmission Date: 20060501
  Serious: Yes (Hospitalization)
  Sender: FDA-Public Use
  Company Number: BE-JNJFOC-20051101463

PATIENT
  Sex: Male
  Weight: 64 kg

DRUGS (11)
  1. BLINDED; ABCIXIMA [Suspect]
     Route: 042
  2. BLINDED; ABCIXIMA [Suspect]
     Indication: ACUTE MYOCARDIAL INFARCTION
     Route: 042
  3. RETEPLASE [Suspect]
     Indication: ACUTE MYOCARDIAL INFARCTION
     Route: 042
  4. PLACEBO [Suspect]
     Indication: ACUTE MYOCARDIAL INFARCTION
     Route: 042
  5. ZOCOR [Concomitant]
     Route: 048
  6. PLAVIX [Concomitant]
     Indication: STENT PLACEMENT
     Route: 048
  7. PLAVIX [Concomitant]
     Route: 048
  8. ASPIRIN [Concomitant]
     Indication: STENT PLACEMENT
     Route: 048
  9. ASPIRIN [Concomitant]
     Route: 048
  10. COVERSYL [Concomitant]
     Indication: HYPERTENSION
     Route: 048
  11. SELOKEN [Concomitant]
     Indication: HYPERTENSION
     Route: 048

REACTIONS (3)
  - DRUG INTERACTION [None]
  - GASTROINTESTINAL HAEMORRHAGE [None]
  - MALLORY-WEISS SYNDROME [None]
